FAERS Safety Report 7558375-0 (Version None)
Quarter: 2011Q2

REPORT INFORMATION
  Report Type: 
  Country: None (occurrence: None)
  Receive Date: 20110620
  Receipt Date: 20110607
  Transmission Date: 20111010
  Serious: Yes (Other)
  Sender: FDA-Public Use
  Company Number: PHHY2011BR15273

PATIENT
  Sex: Female

DRUGS (3)
  1. NOVOMIX [Concomitant]
     Indication: DIABETES MELLITUS
     Dosage: 14 UNITS A DAY, (A MIXTURE OF INSULIN ASPART 30% AND PROTAMINE INSULIN ASPART 70%)
  2. EXFORGE [Suspect]
     Indication: HYPERTENSION
     Dosage: 320 MG VALS AND 5 MG AMLO, 1 TABLET DAILY
     Dates: start: 20030101
  3. LEVEMIR [Concomitant]
     Indication: DIABETES MELLITUS
     Dosage: 14 UNITS A DAY

REACTIONS (3)
  - CEREBROVASCULAR ACCIDENT [None]
  - RENAL IMPAIRMENT [None]
  - DIABETIC NEUROPATHY [None]
